FAERS Safety Report 19075906 (Version 1)
Quarter: 2021Q1

REPORT INFORMATION
  Report Type: Spontaneous
  Country: US (occurrence: US)
  Receive Date: 20210330
  Receipt Date: 20210330
  Transmission Date: 20210420
  Serious: Yes (Other)
  Sender: FDA-Public Use
  Company Number: US-GILEAD-2021-0523050

PATIENT

DRUGS (1)
  1. TRUVADA [Suspect]
     Active Substance: EMTRICITABINE\TENOFOVIR DISOPROXIL FUMARATE
     Indication: PRODUCT USED FOR UNKNOWN INDICATION
     Dosage: UNK
     Route: 048
     Dates: start: 20110324, end: 20161208

REACTIONS (5)
  - Bone loss [Unknown]
  - Osteonecrosis [Unknown]
  - Bone density decreased [Unknown]
  - Arthralgia [Unknown]
  - Osteopenia [Unknown]
